FAERS Safety Report 14419388 (Version 35)
Quarter: 2025Q1

REPORT INFORMATION
  Report Type: Spontaneous
  Country: GB (occurrence: GB)
  Receive Date: 20180122
  Receipt Date: 20250203
  Transmission Date: 20250408
  Serious: Yes (Other)
  Sender: MYLAN
  Company Number: GB-MYLANLABS-2017M1077447

PATIENT
  Age: 32 Year
  Sex: Female

DRUGS (93)
  1. CLOZARIL [Suspect]
     Active Substance: CLOZAPINE
     Indication: Hallucination, auditory
     Route: 048
     Dates: start: 20050215, end: 20171205
  2. CLOZARIL [Suspect]
     Active Substance: CLOZAPINE
     Indication: Schizophrenia
     Route: 048
     Dates: end: 20171205
  3. CLOZARIL [Suspect]
     Active Substance: CLOZAPINE
     Indication: Schizoaffective disorder
     Route: 048
     Dates: start: 20180205, end: 2019
  4. CLOZARIL [Suspect]
     Active Substance: CLOZAPINE
     Route: 048
  5. CLOZARIL [Suspect]
     Active Substance: CLOZAPINE
     Route: 048
     Dates: start: 20150215, end: 20171205
  6. CLOZARIL [Suspect]
     Active Substance: CLOZAPINE
     Route: 048
  7. CLOZARIL [Suspect]
     Active Substance: CLOZAPINE
     Route: 065
  8. CLOZARIL [Suspect]
     Active Substance: CLOZAPINE
     Route: 048
     Dates: start: 20180205, end: 20191205
  9. CLOZARIL [Suspect]
     Active Substance: CLOZAPINE
     Route: 048
     Dates: start: 20050215, end: 20171205
  10. CLOZARIL [Suspect]
     Active Substance: CLOZAPINE
     Route: 048
     Dates: start: 20150215
  11. CLOZARIL [Suspect]
     Active Substance: CLOZAPINE
     Route: 048
     Dates: start: 20180205, end: 20191205
  12. CLOZARIL [Suspect]
     Active Substance: CLOZAPINE
     Route: 065
     Dates: start: 20191205
  13. CLOZARIL [Suspect]
     Active Substance: CLOZAPINE
     Route: 065
  14. CLOZARIL [Suspect]
     Active Substance: CLOZAPINE
     Route: 065
  15. HALOPERIDOL [Suspect]
     Active Substance: HALOPERIDOL
     Indication: Hallucination, auditory
     Route: 065
  16. HALOPERIDOL [Suspect]
     Active Substance: HALOPERIDOL
     Indication: Schizophrenia
     Route: 065
  17. HALOPERIDOL [Suspect]
     Active Substance: HALOPERIDOL
     Route: 065
  18. HALOPERIDOL [Suspect]
     Active Substance: HALOPERIDOL
     Route: 065
  19. HALOPERIDOL [Suspect]
     Active Substance: HALOPERIDOL
     Route: 065
  20. HALOPERIDOL [Suspect]
     Active Substance: HALOPERIDOL
     Route: 065
  21. HALOPERIDOL [Suspect]
     Active Substance: HALOPERIDOL
     Route: 065
     Dates: end: 20171205
  22. HALOPERIDOL [Suspect]
     Active Substance: HALOPERIDOL
     Route: 065
  23. AMISULPRIDE [Suspect]
     Active Substance: AMISULPRIDE
     Indication: Hallucination, auditory
     Route: 048
     Dates: start: 20050215
  24. AMISULPRIDE [Suspect]
     Active Substance: AMISULPRIDE
     Route: 065
  25. AMISULPRIDE [Suspect]
     Active Substance: AMISULPRIDE
     Route: 065
  26. AMISULPRIDE [Suspect]
     Active Substance: AMISULPRIDE
     Route: 065
  27. AMISULPRIDE [Suspect]
     Active Substance: AMISULPRIDE
     Route: 065
     Dates: start: 20050215
  28. AMISULPRIDE [Suspect]
     Active Substance: AMISULPRIDE
     Route: 065
  29. AMISULPRIDE [Suspect]
     Active Substance: AMISULPRIDE
     Route: 048
     Dates: start: 20050215
  30. AMISULPRIDE [Suspect]
     Active Substance: AMISULPRIDE
     Route: 065
  31. AMISULPRIDE [Suspect]
     Active Substance: AMISULPRIDE
     Route: 065
  32. AMISULPRIDE [Suspect]
     Active Substance: AMISULPRIDE
     Route: 065
  33. OLANZAPINE [Suspect]
     Active Substance: OLANZAPINE
     Indication: Hallucination, auditory
     Route: 048
  34. OLANZAPINE [Suspect]
     Active Substance: OLANZAPINE
     Indication: Schizophrenia
     Route: 048
  35. OLANZAPINE [Suspect]
     Active Substance: OLANZAPINE
     Indication: Schizophrenia
     Route: 048
  36. OLANZAPINE [Suspect]
     Active Substance: OLANZAPINE
     Indication: Drug ineffective
     Route: 048
  37. OLANZAPINE [Suspect]
     Active Substance: OLANZAPINE
     Indication: Hallucination, auditory
     Route: 048
  38. OLANZAPINE [Suspect]
     Active Substance: OLANZAPINE
     Route: 065
  39. OLANZAPINE [Suspect]
     Active Substance: OLANZAPINE
     Route: 065
  40. OLANZAPINE [Suspect]
     Active Substance: OLANZAPINE
     Route: 065
  41. OLANZAPINE [Suspect]
     Active Substance: OLANZAPINE
     Route: 065
  42. OLANZAPINE [Suspect]
     Active Substance: OLANZAPINE
     Route: 065
  43. OLANZAPINE [Suspect]
     Active Substance: OLANZAPINE
     Route: 048
  44. QUETIAPINE [Suspect]
     Active Substance: QUETIAPINE
     Indication: Product used for unknown indication
     Route: 065
  45. QUETIAPINE [Suspect]
     Active Substance: QUETIAPINE
     Route: 065
  46. QUETIAPINE [Suspect]
     Active Substance: QUETIAPINE
     Route: 048
  47. QUETIAPINE [Suspect]
     Active Substance: QUETIAPINE
     Route: 065
  48. QUETIAPINE [Suspect]
     Active Substance: QUETIAPINE
     Route: 065
  49. QUETIAPINE [Suspect]
     Active Substance: QUETIAPINE
     Route: 065
  50. RISPERIDONE [Suspect]
     Active Substance: RISPERIDONE
     Indication: Hallucination, auditory
     Route: 065
     Dates: end: 20171205
  51. RISPERIDONE [Suspect]
     Active Substance: RISPERIDONE
     Indication: Schizophrenia
     Route: 065
  52. RISPERIDONE [Suspect]
     Active Substance: RISPERIDONE
     Indication: Hallucination, auditory
     Route: 065
  53. RISPERIDONE [Suspect]
     Active Substance: RISPERIDONE
     Route: 065
  54. RISPERIDONE [Suspect]
     Active Substance: RISPERIDONE
     Route: 065
  55. ARIPIPRAZOLE [Suspect]
     Active Substance: ARIPIPRAZOLE
     Indication: Hallucination, auditory
     Route: 065
  56. ARIPIPRAZOLE [Suspect]
     Active Substance: ARIPIPRAZOLE
     Route: 065
  57. ARIPIPRAZOLE [Suspect]
     Active Substance: ARIPIPRAZOLE
     Route: 065
  58. ARIPIPRAZOLE [Suspect]
     Active Substance: ARIPIPRAZOLE
     Route: 065
  59. ARIPIPRAZOLE [Suspect]
     Active Substance: ARIPIPRAZOLE
     Route: 065
  60. ARIPIPRAZOLE [Suspect]
     Active Substance: ARIPIPRAZOLE
     Indication: Hallucination, auditory
     Route: 065
  61. ARIPIPRAZOLE [Suspect]
     Active Substance: ARIPIPRAZOLE
     Route: 065
  62. ARIPIPRAZOLE [Suspect]
     Active Substance: ARIPIPRAZOLE
     Route: 065
  63. ARIPIPRAZOLE [Suspect]
     Active Substance: ARIPIPRAZOLE
     Route: 065
  64. ARIPIPRAZOLE [Suspect]
     Active Substance: ARIPIPRAZOLE
     Route: 065
  65. ARIPIPRAZOLE [Suspect]
     Active Substance: ARIPIPRAZOLE
     Route: 065
  66. ZUCLOPENTHIXOL HYDROCHLORIDE [Suspect]
     Active Substance: ZUCLOPENTHIXOL HYDROCHLORIDE
     Indication: Hallucination, auditory
     Route: 065
     Dates: end: 20171205
  67. ZUCLOPENTHIXOL HYDROCHLORIDE [Suspect]
     Active Substance: ZUCLOPENTHIXOL HYDROCHLORIDE
     Indication: Schizophrenia
     Route: 065
  68. ZUCLOPENTHIXOL HYDROCHLORIDE [Suspect]
     Active Substance: ZUCLOPENTHIXOL HYDROCHLORIDE
     Indication: Hallucination, auditory
     Route: 065
  69. ZUCLOPENTHIXOL HYDROCHLORIDE [Suspect]
     Active Substance: ZUCLOPENTHIXOL HYDROCHLORIDE
     Indication: Hallucination, auditory
  70. ZUCLOPENTHIXOL HYDROCHLORIDE [Suspect]
     Active Substance: ZUCLOPENTHIXOL HYDROCHLORIDE
     Indication: Drug ineffective
  71. RISPERDAL [Suspect]
     Active Substance: RISPERIDONE
     Indication: Schizophrenia
     Route: 065
  72. RISPERDAL [Suspect]
     Active Substance: RISPERIDONE
     Indication: Hallucination, auditory
     Route: 065
  73. RISPERDAL [Suspect]
     Active Substance: RISPERIDONE
     Indication: Hallucination, auditory
     Route: 065
  74. RISPERDAL [Suspect]
     Active Substance: RISPERIDONE
     Indication: Drug ineffective
     Route: 065
  75. RISPERDAL [Suspect]
     Active Substance: RISPERIDONE
     Route: 065
  76. RISPERDAL [Suspect]
     Active Substance: RISPERIDONE
     Route: 065
  77. RISPERDAL [Suspect]
     Active Substance: RISPERIDONE
     Route: 065
  78. RISPERDAL [Suspect]
     Active Substance: RISPERIDONE
     Route: 065
     Dates: end: 20171205
  79. HALDOL [Suspect]
     Active Substance: HALOPERIDOL
     Indication: Hallucination, auditory
     Route: 065
     Dates: end: 20171205
  80. HALDOL [Suspect]
     Active Substance: HALOPERIDOL
     Indication: Schizophrenia
     Route: 065
  81. HALDOL [Suspect]
     Active Substance: HALOPERIDOL
     Indication: Product used for unknown indication
     Route: 065
  82. HALDOL [Suspect]
     Active Substance: HALOPERIDOL
     Indication: Drug ineffective
     Route: 065
  83. HALDOL [Suspect]
     Active Substance: HALOPERIDOL
     Indication: Hallucination, auditory
     Route: 065
  84. AMISULPRIDE [Suspect]
     Active Substance: AMISULPRIDE
     Indication: Hallucination, auditory
     Route: 065
     Dates: start: 20050215
  85. AMISULPRIDE [Suspect]
     Active Substance: AMISULPRIDE
     Route: 065
     Dates: start: 20050215
  86. AMISULPRIDE [Suspect]
     Active Substance: AMISULPRIDE
     Route: 065
  87. AMISULPRIDE [Suspect]
     Active Substance: AMISULPRIDE
     Route: 065
  88. AMISULPRIDE [Suspect]
     Active Substance: AMISULPRIDE
     Route: 065
     Dates: start: 20050215
  89. AMISULPRIDE [Suspect]
     Active Substance: AMISULPRIDE
     Route: 065
  90. ZUCLOPENTHIXOL [Suspect]
     Active Substance: ZUCLOPENTHIXOL
     Indication: Schizophrenia
     Route: 065
     Dates: end: 20171205
  91. ZUCLOPENTHIXOL [Suspect]
     Active Substance: ZUCLOPENTHIXOL
     Indication: Hallucination, auditory
  92. ZUCLOPENTHIXOL [Suspect]
     Active Substance: ZUCLOPENTHIXOL
     Indication: Hallucination, auditory
  93. ZUCLOPENTHIXOL [Suspect]
     Active Substance: ZUCLOPENTHIXOL
     Indication: Drug ineffective

REACTIONS (16)
  - Suicidal ideation [Unknown]
  - Eating disorder [Unknown]
  - Refusal of examination [Unknown]
  - Schizophrenia [Not Recovered/Not Resolved]
  - Mental impairment [Not Recovered/Not Resolved]
  - Malaise [Not Recovered/Not Resolved]
  - Eosinophil count decreased [Recovered/Resolved]
  - Neutropenia [Recovered/Resolved]
  - Leukopenia [Recovered/Resolved]
  - Drug ineffective [Unknown]
  - Drug abuse [Unknown]
  - Intentional product misuse [Unknown]
  - Medication error [Unknown]
  - Product use in unapproved indication [Unknown]
  - Gastroenteritis [Unknown]
  - Food poisoning [Unknown]

NARRATIVE: CASE EVENT DATE: 20170901
